FAERS Safety Report 25020234 (Version 3)
Quarter: 2025Q2

REPORT INFORMATION
  Report Type: Spontaneous
  Country: JP (occurrence: JP)
  Receive Date: 20250227
  Receipt Date: 20250428
  Transmission Date: 20250716
  Serious: Yes (Life-Threatening, Hospitalization)
  Sender: ALEXION PHARMACEUTICALS
  Company Number: JP-ASTRAZENECA-250018202_012620_P_1

PATIENT
  Age: 72 Year
  Weight: 157 kg

DRUGS (22)
  1. TRUQAP [Suspect]
     Active Substance: CAPIVASERTIB
     Indication: Breast cancer recurrent
     Dosage: 400 MILLIGRAM, BID, ON A 4-DAY-ON, 3-DAY-OFF SCHEDULE
  2. FULVESTRANT [Suspect]
     Active Substance: FULVESTRANT
     Indication: Breast cancer recurrent
  3. FULVESTRANT [Suspect]
     Active Substance: FULVESTRANT
     Dosage: 500 MILLIGRAM, QD
  4. TENELIGLIPTIN [Concomitant]
     Active Substance: TENELIGLIPTIN
     Indication: Type 2 diabetes mellitus
     Dosage: 20 MILLIGRAM, QD
  5. METGLUCO [Concomitant]
     Active Substance: METFORMIN HYDROCHLORIDE
     Indication: Type 2 diabetes mellitus
     Dosage: 250 MILLIGRAM, BID
  6. CANAGLIFLOZIN [Concomitant]
     Active Substance: CANAGLIFLOZIN
     Indication: Type 2 diabetes mellitus
     Dosage: 100 MILLIGRAM, QD
  7. LANSOPRAZOLE [Concomitant]
     Active Substance: LANSOPRAZOLE
     Indication: Dermatitis
     Dosage: 15 MILLIGRAM, QD
  8. SULFAMETHOXAZOLE\TRIMETHOPRIM [Concomitant]
     Active Substance: SULFAMETHOXAZOLE\TRIMETHOPRIM
     Indication: Dermatitis
     Dosage: 1 DOSAGE FORM, QD
  9. OXYCODONE [Concomitant]
     Active Substance: OXYCODONE
     Indication: Breast cancer recurrent
     Dosage: 20 MILLIGRAM, BID
  10. SYMPROIC [Concomitant]
     Active Substance: NALDEMEDINE TOSYLATE
     Indication: Breast cancer recurrent
     Dosage: 0.2 MILLIGRAM, QD
  11. MAGNESIUM OXIDE [Concomitant]
     Active Substance: MAGNESIUM OXIDE
     Indication: Breast cancer recurrent
     Dosage: 500 MILLIGRAM, BID
  12. ROSUVASTATIN [Concomitant]
     Active Substance: ROSUVASTATIN
     Indication: Dyslipidaemia
     Dosage: 2.5 MILLIGRAM, QD
  13. AMBROXOL HYDROCHLORIDE [Concomitant]
     Active Substance: AMBROXOL HYDROCHLORIDE
     Indication: Cough
     Dosage: 45 MILLIGRAM, QD
  14. CARBOCYSTEINE [Concomitant]
     Active Substance: CARBOCYSTEINE
     Indication: Cough
     Dosage: 500 MILLIGRAM, TID
  15. Hustazol [Concomitant]
     Indication: Cough
     Dosage: 10 MILLIGRAM, TID
  16. IBRANCE [Concomitant]
     Active Substance: PALBOCICLIB
     Indication: Breast cancer recurrent
     Route: 065
  17. CAPECITABINE [Concomitant]
     Active Substance: CAPECITABINE
     Indication: Breast cancer recurrent
     Route: 065
  18. TS-1 [Concomitant]
     Active Substance: GIMERACIL\OTERACIL POTASSIUM\TEGAFUR
     Indication: Breast cancer recurrent
     Route: 065
  19. ERIBULIN [Concomitant]
     Active Substance: ERIBULIN
     Indication: Breast cancer recurrent
     Route: 065
  20. PACLITAXEL [Concomitant]
     Active Substance: PACLITAXEL
     Indication: Breast cancer recurrent
     Route: 065
  21. BEVACIZUMAB [Concomitant]
     Active Substance: BEVACIZUMAB
     Indication: Breast cancer recurrent
     Route: 065
  22. PEMBROLIZUMAB [Concomitant]
     Active Substance: PEMBROLIZUMAB
     Indication: Breast cancer recurrent
     Route: 065

REACTIONS (1)
  - Stevens-Johnson syndrome [Recovered/Resolved]
